FAERS Safety Report 24881937 (Version 1)
Quarter: 2025Q1

REPORT INFORMATION
  Report Type: Spontaneous
  Country: PT (occurrence: PT)
  Receive Date: 20250124
  Receipt Date: 20250124
  Transmission Date: 20250409
  Serious: Yes (Other)
  Sender: STRIDES
  Company Number: PT-STRIDES ARCOLAB LIMITED-2025SP001103

PATIENT
  Age: 56 Year
  Sex: Female

DRUGS (6)
  1. METHOTREXATE [Suspect]
     Active Substance: METHOTREXATE
     Indication: Rheumatoid arthritis
     Route: 065
  2. FREMANEZUMAB [Concomitant]
     Active Substance: FREMANEZUMAB
     Indication: Migraine
     Route: 065
  3. PREDNISOLONE [Concomitant]
     Active Substance: PREDNISOLONE
     Indication: Rheumatoid arthritis
     Route: 065
  4. FOLIC ACID [Concomitant]
     Active Substance: FOLIC ACID
     Indication: Rheumatoid arthritis
     Route: 065
  5. CALCIUM [Concomitant]
     Active Substance: CALCIUM
     Indication: Rheumatoid arthritis
     Route: 065
  6. VITAMIN D [Concomitant]
     Active Substance: VITAMIN D NOS
     Indication: Rheumatoid arthritis
     Route: 065

REACTIONS (2)
  - Gastrointestinal disorder [Unknown]
  - Drug intolerance [Unknown]
